FAERS Safety Report 26080681 (Version 2)
Quarter: 2025Q4

REPORT INFORMATION
  Report Type: Report from Study
  Country: US (occurrence: US)
  Receive Date: 20251124
  Receipt Date: 20251215
  Transmission Date: 20260118
  Serious: Yes (Hospitalization)
  Sender: BEIGENE
  Company Number: US-BEIGENE-BGN-2025-007560

PATIENT
  Sex: Male
  Weight: 100.98 kg

DRUGS (2)
  1. BRUKINSA [Suspect]
     Active Substance: ZANUBRUTINIB
     Indication: Chronic lymphocytic leukaemia
     Dosage: 160 MILLIGRAM, DAILY
     Route: 061
  2. BRUKINSA [Suspect]
     Active Substance: ZANUBRUTINIB
     Dosage: 160 MILLIGRAM, DAILY
     Route: 061

REACTIONS (10)
  - Cerebral haemorrhage [Unknown]
  - Fall [Unknown]
  - Head injury [Unknown]
  - Muscular weakness [Unknown]
  - Peripheral swelling [Unknown]
  - Dry skin [Unknown]
  - Pruritus [Unknown]
  - Weight increased [Unknown]
  - Fluid retention [Unknown]
  - Musculoskeletal discomfort [Unknown]
